FAERS Safety Report 7926707-7 (Version None)
Quarter: 2011Q4

REPORT INFORMATION
  Report Type: 
  Country: None (occurrence: None)
  Receive Date: 20111118
  Receipt Date: 20111108
  Transmission Date: 20120403
  Serious: No
  Sender: FDA-Public Use
  Company Number: JP-JNJFOC-20111104606

PATIENT

DRUGS (2)
  1. FENTANYL-100 [Suspect]
     Indication: CANCER PAIN
     Dosage: 2 PATCHES OF 100 MCG/HR
     Route: 062
  2. FENTANYL-100 [Suspect]
     Dosage: 100 MCG/HR EACH PATCH ON DIFFERENT DAY
     Route: 062

REACTIONS (3)
  - INCORRECT DOSE ADMINISTERED [None]
  - DRUG PRESCRIBING ERROR [None]
  - DRUG EFFECT DECREASED [None]
